FAERS Safety Report 6125698-1 (Version None)
Quarter: 2009Q1

REPORT INFORMATION
  Report Type: 
  Country: None (occurrence: None)
  Receive Date: 20090319
  Receipt Date: 20090319
  Transmission Date: 20090719
  Serious: Yes (Other)
  Sender: FDA-Public Use
  Company Number: None

PATIENT
  Age: 89 Year
  Sex: Female
  Weight: 49.4421 kg

DRUGS (9)
  1. LEVAQUIN [Suspect]
     Indication: PNEUMONIA
     Dosage: 750MG ONE DOSE IV PARTIAL DOSE
     Route: 042
     Dates: start: 20090316, end: 20090316
  2. LEVAQUIN [Concomitant]
  3. ATROVENT NEBULIZERS [Concomitant]
  4. CATAPRES [Concomitant]
  5. TYLENOL [Concomitant]
  6. LOVENOX [Concomitant]
  7. TTS-1 PATCH [Concomitant]
  8. IV FLUID [Concomitant]
  9. LACTATEDB RINGERS WITH KCL [Concomitant]

REACTIONS (6)
  - BURNING SENSATION [None]
  - DRUG HYPERSENSITIVITY [None]
  - ERYTHEMA [None]
  - INFUSION RELATED REACTION [None]
  - PAIN [None]
  - PRURITUS [None]
